FAERS Safety Report 6026409-0 (Version None)
Quarter: 2009Q1

REPORT INFORMATION
  Report Type: 
  Country: None (occurrence: None)
  Receive Date: 20090102
  Receipt Date: 20081222
  Transmission Date: 20090719
  Serious: Yes (Other)
  Sender: FDA-Public Use
  Company Number: PT-AMGEN-UK313197

PATIENT

DRUGS (8)
  1. NEULASTA [Suspect]
     Indication: DRUG USE FOR UNKNOWN INDICATION
     Route: 058
  2. DEXAMETHASONE [Concomitant]
  3. ONDANSETRON [Concomitant]
  4. METOCLOPRAMIDE [Concomitant]
  5. PREDNISOLONE [Concomitant]
  6. NYSTATINE [Concomitant]
  7. CYCLOPHOSPHAMIDE [Concomitant]
  8. DOXORUBICIN HYDROCHLORIDE [Concomitant]

REACTIONS (1)
  - NO THERAPEUTIC RESPONSE [None]
